FAERS Safety Report 9586387 (Version 2)
Quarter: 2013Q4

REPORT INFORMATION
  Report Type: Spontaneous
  Country: CA (occurrence: CA)
  Receive Date: 20131003
  Receipt Date: 20131227
  Transmission Date: 20140711
  Serious: Yes (Hospitalization)
  Sender: FDA-Public Use
  Company Number: PHHY2013CA108103

PATIENT
  Age: 58 Year
  Sex: Male

DRUGS (10)
  1. CLOZARIL [Suspect]
     Indication: SCHIZOPHRENIA
     Dosage: 500 MG, UNK
     Route: 048
  2. CLOZARIL [Suspect]
     Dosage: 375 MG, (DIVIDED DOSE) DAILY
  3. PREDNISOLONE [Concomitant]
  4. OLANZAPINE [Concomitant]
     Dosage: 20 MG, UNK
  5. ARIPIPRAZOLE [Concomitant]
     Dosage: 15 MG, ONCE DAILY
  6. QUETIAPINE [Concomitant]
  7. CYCLOPHOSPHAMIDE [Concomitant]
  8. DOXORUBICIN [Concomitant]
  9. RITUXIMAB [Concomitant]
  10. VINCRISTINE [Concomitant]

REACTIONS (12)
  - Lymph node palpable [Recovered/Resolved]
  - Swelling face [Unknown]
  - Primary mediastinal large B-cell lymphoma stage III [Recovered/Resolved]
  - Cardiac disorder [Recovered/Resolved]
  - Hallucination, auditory [Recovered/Resolved]
  - Psychotic disorder [Recovered/Resolved]
  - Agranulocytosis [Recovered/Resolved]
  - Agitation [Recovered/Resolved]
  - Restlessness [Recovered/Resolved]
  - Insomnia [Recovered/Resolved]
  - Delusion [Recovered/Resolved]
  - White blood cell count decreased [Recovered/Resolved]
